FAERS Safety Report 19074228 (Version 1)
Quarter: 2021Q1

REPORT INFORMATION
  Report Type: Spontaneous
  Country: US (occurrence: US)
  Receive Date: 20210330
  Receipt Date: 20210330
  Transmission Date: 20210420
  Serious: Yes (Other)
  Sender: FDA-Public Use
  Company Number: US-PFIZER INC-2021321640

PATIENT
  Age: 49 Year
  Sex: Female

DRUGS (1)
  1. XELJANZ [Suspect]
     Active Substance: TOFACITINIB CITRATE
     Indication: SCLERODERMA
     Dosage: 5 MG, 2X/DAY
     Route: 048

REACTIONS (3)
  - Pulmonary hypertension [Unknown]
  - Pulmonary embolism [Unknown]
  - Off label use [Unknown]
